FAERS Safety Report 17487382 (Version 1)
Quarter: 2020Q1

REPORT INFORMATION
  Report Type: Spontaneous
  Country: US (occurrence: US)
  Receive Date: 20200302
  Receipt Date: 20200302
  Transmission Date: 20200409
  Serious: Yes (Other)
  Sender: FDA-Public Use
  Company Number: None

PATIENT
  Age: 68 Year
  Sex: Female
  Weight: 143.14 kg

DRUGS (22)
  1. NOVOLOG [Concomitant]
     Active Substance: INSULIN ASPART
  2. AVAPRO [Concomitant]
     Active Substance: IRBESARTAN
  3. CHLORTHALIDONE. [Concomitant]
     Active Substance: CHLORTHALIDONE
  4. KLONOPIN [Concomitant]
     Active Substance: CLONAZEPAM
  5. LIOTHYRONINE [Concomitant]
     Active Substance: LIOTHYRONINE
  6. SEROQUEL [Concomitant]
     Active Substance: QUETIAPINE FUMARATE
  7. ZINC. [Concomitant]
     Active Substance: ZINC
  8. FARXIGA [Concomitant]
     Active Substance: DAPAGLIFLOZIN PROPANEDIOL
  9. LEVOCETIRIZINE [Concomitant]
     Active Substance: LEVOCETIRIZINE
  10. ATORVASTATIN [Concomitant]
     Active Substance: ATORVASTATIN
  11. JANUVIA [Concomitant]
     Active Substance: SITAGLIPTIN PHOSPHATE
  12. MULTIVITAMIN [Concomitant]
     Active Substance: VITAMINS
  13. CAPECITABINE. [Suspect]
     Active Substance: CAPECITABINE
     Indication: BREAST CANCER FEMALE
     Route: 048
     Dates: start: 20200212, end: 20200302
  14. DILTIAZEM. [Concomitant]
     Active Substance: DILTIAZEM
  15. METFORMIN [Concomitant]
     Active Substance: METFORMIN HYDROCHLORIDE
  16. PERCOCET [Concomitant]
     Active Substance: ACETAMINOPHEN\OXYCODONE HYDROCHLORIDE
  17. SPIRONOLOACTONE [Concomitant]
  18. PANTOPRAZOLE [Concomitant]
     Active Substance: PANTOPRAZOLE
  19. ASPIRIN. [Concomitant]
     Active Substance: ASPIRIN
  20. ATENOLOL. [Concomitant]
     Active Substance: ATENOLOL
  21. FISH OIL [Concomitant]
     Active Substance: FISH OIL
  22. VICTOZA [Concomitant]
     Active Substance: LIRAGLUTIDE

REACTIONS (2)
  - Therapy cessation [None]
  - Chest pain [None]

NARRATIVE: CASE EVENT DATE: 20200302
